FAERS Safety Report 7844529-2 (Version None)
Quarter: 2011Q4

REPORT INFORMATION
  Report Type: 
  Country: None (occurrence: None)
  Receive Date: 20111025
  Receipt Date: 20111013
  Transmission Date: 20120403
  Serious: Yes (Hospitalization)
  Sender: FDA-Public Use
  Company Number: US-BAYER-2011-050496

PATIENT
  Age: 43 Year
  Sex: Female
  Weight: 68.027 kg

DRUGS (10)
  1. YASMIN [Suspect]
  2. ASPIRIN [Concomitant]
  3. VENTOLIN [Concomitant]
  4. ADVAIR DISKUS 100/50 [Concomitant]
  5. ZYRTEC [Concomitant]
  6. ASCORBIC ACID [Concomitant]
     Dosage: UNK
     Dates: start: 20020101, end: 20030101
  7. ACCOLATE [Concomitant]
  8. SUDAFED 12 HOUR [Concomitant]
  9. BACTRIM [Concomitant]
  10. PLAVIX [Concomitant]

REACTIONS (5)
  - PAIN [None]
  - COAGULOPATHY [None]
  - INJURY [None]
  - CEREBROVASCULAR ACCIDENT [None]
  - MENTAL DISORDER [None]
